FAERS Safety Report 6787377-7 (Version None)
Quarter: 2010Q2

REPORT INFORMATION
  Report Type: 
  Country: None (occurrence: None)
  Receive Date: 20100623
  Receipt Date: 20061025
  Transmission Date: 20101027
  Serious: No
  Sender: FDA-Public Use
  Company Number: US-PFIZER INC-2007022168

PATIENT

DRUGS (2)
  1. CADUET [Suspect]
     Dosage: 10/40
  2. DIOVAN [Concomitant]

REACTIONS (1)
  - FLUSHING [None]
